FAERS Safety Report 14363067 (Version 3)
Quarter: 2018Q2

REPORT INFORMATION
  Report Type: Spontaneous
  Country: BR (occurrence: BR)
  Receive Date: 20180108
  Receipt Date: 20180626
  Transmission Date: 20180711
  Serious: Yes (Other)
  Sender: FDA-Public Use
  Company Number: BR-PFIZER INC-2017191521

PATIENT
  Sex: Female
  Weight: 2.4 kg

DRUGS (1)
  1. XELJANZ [Suspect]
     Active Substance: TOFACITINIB CITRATE
     Indication: RHEUMATOID ARTHRITIS
     Dosage: 2 TABLETS OF 5 MG DAILY
     Route: 064
     Dates: end: 201704

REACTIONS (5)
  - Maternal exposure during pregnancy [Unknown]
  - Premature baby [Recovered/Resolved]
  - Foetal growth restriction [Not Recovered/Not Resolved]
  - Poor feeding infant [Unknown]
  - Developmental delay [Unknown]

NARRATIVE: CASE EVENT DATE: 201704
